FAERS Safety Report 5524961-2 (Version None)
Quarter: 2007Q4

REPORT INFORMATION
  Report Type: 
  Country: None (occurrence: None)
  Receive Date: 20071126
  Receipt Date: 20071113
  Transmission Date: 20080405
  Serious: Yes (Hospitalization)
  Sender: FDA-Public Use
  Company Number: FR-ELI_LILLY_AND_COMPANY-FR200711002716

PATIENT
  Sex: Female

DRUGS (9)
  1. PROZAC [Suspect]
     Route: 048
  2. COZAAR [Concomitant]
     Route: 048
  3. DIAMICRON [Concomitant]
     Route: 065
  4. LASIX [Concomitant]
     Indication: HYPERTENSION
     Route: 048
  5. DIGOXIN [Concomitant]
     Indication: ARRHYTHMIA
     Route: 048
  6. CORDARONE [Concomitant]
     Indication: ARRHYTHMIA
     Route: 048
  7. MINISINTROM [Concomitant]
     Indication: ARRHYTHMIA
     Route: 048
  8. NICARDIPINE HCL [Concomitant]
     Indication: HYPERTENSION
     Dosage: UNK, UNKNOWN
     Route: 048
     Dates: end: 20070928
  9. NICARDIPINE HCL [Concomitant]
     Dosage: UNK, UNKNOWN
     Route: 042
     Dates: start: 20070928

REACTIONS (3)
  - ARTERITIS [None]
  - HYPONATRAEMIA [None]
  - RENAL FAILURE [None]
